FAERS Safety Report 18610745 (Version 3)
Quarter: 2020Q4

REPORT INFORMATION
  Report Type: Spontaneous
  Country: US (occurrence: US)
  Receive Date: 20201214
  Receipt Date: 20201222
  Transmission Date: 20210114
  Serious: Yes (Other)
  Sender: FDA-Public Use
  Company Number: US-PFIZER INC-2020490648

PATIENT
  Age: 80 Year

DRUGS (1)
  1. PREMARIN [Suspect]
     Active Substance: ESTROGENS, CONJUGATED
     Dosage: UNK, 2X/WEEK

REACTIONS (5)
  - Product prescribing error [Unknown]
  - Illness [Unknown]
  - Spinal disorder [Unknown]
  - Memory impairment [Unknown]
  - Spinal pain [Unknown]

NARRATIVE: CASE EVENT DATE: 2020
